FAERS Safety Report 4926853-6 (Version None)
Quarter: 2006Q1

REPORT INFORMATION
  Report Type: 
  Country: None (occurrence: None)
  Receive Date: 20060228
  Receipt Date: 20050705
  Transmission Date: 20060701
  Serious: No
  Sender: FDA-Public Use
  Company Number: US-GLAXOSMITHKLINE-A0564961A

PATIENT
  Age: 27 Year
  Sex: Male

DRUGS (5)
  1. LAMICTAL [Suspect]
     Dosage: 125MG TWICE PER DAY
     Route: 048
     Dates: start: 20041001
  2. TRAZODONE [Concomitant]
  3. ZYPREXA [Concomitant]
  4. PREVACID [Concomitant]
  5. PULMICORT [Concomitant]

REACTIONS (4)
  - EMOTIONAL DISTRESS [None]
  - ERYTHEMA [None]
  - RASH [None]
  - URTICARIA [None]
